FAERS Safety Report 15918830 (Version 7)
Quarter: 2019Q3

REPORT INFORMATION
  Report Type: Report from Study
  Country: AT (occurrence: AT)
  Receive Date: 20190205
  Receipt Date: 20190903
  Transmission Date: 20191004
  Serious: Yes (Death, Hospitalization, Other)
  Sender: FDA-Public Use
  Company Number: AT-SA-2017SA025456

PATIENT
  Age: 77 Year
  Sex: Male
  Weight: 88.7 kg

DRUGS (2)
  1. CABAZITAXEL [Suspect]
     Active Substance: CABAZITAXEL
     Indication: HORMONE-REFRACTORY PROSTATE CANCER
     Dosage: 25 MG/M2,QCY (DAILY DOSE: 25 MG/M2 MILLIGRAM(S)/SQ. METER EVERY CYCLICAL)
     Route: 042
     Dates: start: 20161122, end: 20161122
  2. DOCETAXEL. [Concomitant]
     Active Substance: DOCETAXEL
     Dosage: UNK
     Route: 065

REACTIONS (2)
  - Thrombocytopenia [Recovering/Resolving]
  - General physical health deterioration [Recovering/Resolving]

NARRATIVE: CASE EVENT DATE: 20161222
